FAERS Safety Report 24799180 (Version 3)
Quarter: 2025Q1

REPORT INFORMATION
  Report Type: Report from Study
  Country: US (occurrence: US)
  Receive Date: 20250102
  Receipt Date: 20250107
  Transmission Date: 20250408
  Serious: Yes (Hospitalization, Other)
  Sender: BRISTOL-MYERS SQUIBB COMPANY
  Company Number: US-BRISTOL-MYERS SQUIBB COMPANY-2025-000259

PATIENT
  Age: 90 Year
  Sex: Female

DRUGS (2)
  1. ELIQUIS [Suspect]
     Active Substance: APIXABAN
     Indication: Atrial fibrillation
     Route: 048
     Dates: start: 2024
  2. ELIQUIS [Suspect]
     Active Substance: APIXABAN
     Indication: Cerebrovascular accident prophylaxis
     Route: 048
     Dates: start: 2024

REACTIONS (8)
  - Cardiac disorder [Unknown]
  - Fall [Unknown]
  - Arthropathy [Unknown]
  - Product packaging quantity issue [Unknown]
  - Visual impairment [Unknown]
  - Therapy interrupted [Unknown]
  - Hypertension [Recovering/Resolving]
  - Arthritis [Unknown]
